FAERS Safety Report 25261949 (Version 1)
Quarter: 2025Q2

REPORT INFORMATION
  Report Type: Spontaneous
  Country: FR (occurrence: FR)
  Receive Date: 20250502
  Receipt Date: 20250502
  Transmission Date: 20250717
  Serious: Yes (Other)
  Sender: EMD SERONO INC
  Company Number: FR-Merck Healthcare KGaA-2025020591

PATIENT
  Sex: Female

DRUGS (1)
  1. LEVOTHYROXINE [Suspect]
     Active Substance: LEVOTHYROXINE
     Indication: Hypothyroidism
     Dosage: EVERY MORNING

REACTIONS (7)
  - Mental impairment [Unknown]
  - Temperature intolerance [Unknown]
  - Autophobia [Unknown]
  - Mood altered [Unknown]
  - Fatigue [Unknown]
  - Weight increased [Unknown]
  - Palpitations [Unknown]
